FAERS Safety Report 6046319-2 (Version None)
Quarter: 2009Q1

REPORT INFORMATION
  Report Type: 
  Country: None (occurrence: None)
  Receive Date: 20090122
  Receipt Date: 20090114
  Transmission Date: 20090719
  Serious: Yes (Other)
  Sender: FDA-Public Use
  Company Number: US-WYE-H07700009

PATIENT
  Sex: Male

DRUGS (6)
  1. TORISEL [Suspect]
     Indication: RENAL CELL CARCINOMA
     Route: 042
     Dates: start: 20070101
  2. TORISEL [Suspect]
     Route: 042
     Dates: start: 20070101
  3. TORISEL [Suspect]
     Route: 042
     Dates: start: 20080101, end: 20090113
  4. GEMFIBROZIL [Concomitant]
     Indication: LIPIDS INCREASED
     Route: 065
  5. CLINDAMYCIN HCL [Concomitant]
     Indication: RASH
     Dosage: UNKNOWN
     Route: 061
     Dates: start: 20080601
  6. ALPRAZOLAM [Concomitant]
     Dosage: 1 MG Q 6 HOURS AS NEEDED
     Route: 065

REACTIONS (3)
  - LIPIDS INCREASED [None]
  - NEOPLASM [None]
  - RASH [None]
